FAERS Safety Report 16945968 (Version 1)
Quarter: 2019Q4

REPORT INFORMATION
  Report Type: Spontaneous
  Country: US (occurrence: US)
  Receive Date: 20191021
  Receipt Date: 20191021
  Transmission Date: 20200122
  Serious: Yes (Hospitalization, Disabling)
  Sender: FDA-Public Use
  Company Number: None

PATIENT
  Age: 53 Year
  Sex: Female
  Weight: 80.55 kg

DRUGS (7)
  1. MAXZIDE [Concomitant]
     Active Substance: HYDROCHLOROTHIAZIDE\TRIAMTERENE
  2. FLAX [Concomitant]
  3. OMEGA 3-6-9 [Concomitant]
     Active Substance: FISH OIL
  4. BORAGE [Concomitant]
  5. FISH [Concomitant]
     Active Substance: FISH
  6. METFORMIN [Concomitant]
     Active Substance: METFORMIN HYDROCHLORIDE
  7. TRULICITY [Suspect]
     Active Substance: DULAGLUTIDE
     Indication: TYPE 2 DIABETES MELLITUS
     Dates: start: 20180315

REACTIONS (2)
  - Dehydration [None]
  - Kidney enlargement [None]

NARRATIVE: CASE EVENT DATE: 20190729
